FAERS Safety Report 16354677 (Version 1)
Quarter: 2019Q2

REPORT INFORMATION
  Report Type: Spontaneous
  Country: AT (occurrence: AT)
  Receive Date: 20190524
  Receipt Date: 20190524
  Transmission Date: 20190711
  Serious: Yes (Other)
  Sender: FDA-Public Use
  Company Number: AT-TEVA-2019-AT-1053364

PATIENT
  Sex: Female

DRUGS (9)
  1. TAXOL [Suspect]
     Active Substance: PACLITAXEL
     Indication: ADENOCARCINOMA
     Dosage: 175 MG, UNK
     Route: 005
  2. CISPLATIN SANDOZ [Suspect]
     Active Substance: CISPLATIN
     Indication: ADENOCARCINOMA
     Dosage: DOSAGE FORM: UNSPECIFIED
     Route: 065
  3. PACLITAXEL. [Suspect]
     Active Substance: PACLITAXEL
     Indication: ADENOCARCINOMA
     Dosage: 175 MG/M2, Q3W
     Route: 065
  4. YONDELIS [Suspect]
     Active Substance: TRABECTEDIN
     Indication: ADENOCARCINOMA
     Dosage: DOSAGE FORM: LYOPHILIZED POWDER
     Route: 065
     Dates: end: 201810
  5. CAELYX [Suspect]
     Active Substance: DOXORUBICIN HYDROCHLORIDE
     Indication: ADENOCARCINOMA
     Dosage: UNK
     Route: 065
     Dates: end: 201810
  6. CARBOPLATIN. [Suspect]
     Active Substance: CARBOPLATIN
     Indication: ADENOCARCINOMA
     Dosage: UNK (4 CYCLES)
     Route: 065
  7. TAXOL [Suspect]
     Active Substance: PACLITAXEL
     Dosage: UNK
     Route: 005
  8. CARBOPLATIN. [Suspect]
     Active Substance: CARBOPLATIN
     Dosage: UNK
     Route: 065
  9. EBETAXEL [Suspect]
     Active Substance: PACLITAXEL
     Indication: ADENOCARCINOMA
     Dosage: 175 MG, UNK
     Route: 065

REACTIONS (11)
  - Heart rate increased [Unknown]
  - Drug hypersensitivity [Unknown]
  - Paraesthesia [Unknown]
  - Metastases to liver [Unknown]
  - Product use in unapproved indication [Unknown]
  - Nausea [Unknown]
  - Off label use [Unknown]
  - Rash [Unknown]
  - Blood pressure increased [Unknown]
  - Angiopathy [Unknown]
  - Therapeutic response decreased [Unknown]

NARRATIVE: CASE EVENT DATE: 20180326
